FAERS Safety Report 8031043-7 (Version None)
Quarter: 2012Q1

REPORT INFORMATION
  Report Type: 
  Country: None (occurrence: None)
  Receive Date: 20120109
  Receipt Date: 20120103
  Transmission Date: 20120608
  Serious: No
  Sender: FDA-Public Use
  Company Number: US-PFIZER INC-2011268050

PATIENT
  Sex: Female

DRUGS (4)
  1. XALATAN [Suspect]
     Indication: VISUAL IMPAIRMENT
  2. LATANOPROST [Suspect]
     Indication: GLAUCOMA
     Dosage: AT BEDTIME
  3. XALATAN [Suspect]
     Indication: EYE DISORDER
     Dosage: 1 GTT IN EACH EYE, 1X/DAY AT BEDTIME
     Route: 047
  4. XALATAN [Suspect]
     Indication: GLAUCOMA

REACTIONS (6)
  - CONJUNCTIVITIS ALLERGIC [None]
  - EYE IRRITATION [None]
  - DRUG INEFFECTIVE [None]
  - FEELING ABNORMAL [None]
  - URTICARIA [None]
  - DRUG HYPERSENSITIVITY [None]
